FAERS Safety Report 8619953-0 (Version None)
Quarter: 2012Q3

REPORT INFORMATION
  Report Type: 
  Country: None (occurrence: None)
  Receive Date: 20120817
  Receipt Date: 20120817
  Transmission Date: 20120928
  Serious: Yes (Hospitalization)
  Sender: FDA-Public Use
  Company Number: None

PATIENT
  Age: 77 Year
  Sex: Female
  Weight: 75 kg

DRUGS (10)
  1. CALCIUM CARBONATE [Concomitant]
  2. AMLODIPINE [Suspect]
     Indication: HYPERTENSION
     Dosage: 5MG DAILY PO
     Route: 048
     Dates: start: 20120717, end: 20120814
  3. ARIMIDEX [Concomitant]
  4. WARFARIN SODIUM [Concomitant]
  5. TORSEMIDE [Concomitant]
  6. SENOKOT [Concomitant]
  7. CYMBALTA [Concomitant]
  8. RIVASTIGMINE [Concomitant]
  9. METFORMIN HCL [Concomitant]
  10. MULTIVITAMIN [Concomitant]

REACTIONS (4)
  - SWOLLEN TONGUE [None]
  - PHARYNGEAL OEDEMA [None]
  - DYSPNOEA [None]
  - PROTRUSION TONGUE [None]
